FAERS Safety Report 5857916-9 (Version None)
Quarter: 2008Q3

REPORT INFORMATION
  Report Type: 
  Country: None (occurrence: None)
  Receive Date: 20080825
  Receipt Date: 20080825
  Transmission Date: 20090109
  Serious: Yes (Other)
  Sender: FDA-Public Use
  Company Number: None

PATIENT
  Age: 59 Year
  Sex: Male
  Weight: 60.3284 kg

DRUGS (1)
  1. GADOLINIUM [Suspect]

REACTIONS (4)
  - ARTHRALGIA [None]
  - HYPERKERATOSIS [None]
  - SPLINTER [None]
  - SWELLING [None]
